FAERS Safety Report 5915126-0 (Version None)
Quarter: 2008Q4

REPORT INFORMATION
  Report Type: 
  Country: None (occurrence: None)
  Receive Date: 20081010
  Receipt Date: 20081001
  Transmission Date: 20090506
  Serious: Yes (Other)
  Sender: FDA-Public Use
  Company Number: JP-BAXTER-2008BH010484

PATIENT
  Age: 65 Year
  Sex: Male

DRUGS (6)
  1. ENDOXAN BAXTER [Suspect]
     Indication: LYMPHOMA
     Dosage: DOSE UNIT:UNKNOWN
     Route: 065
     Dates: start: 20030701, end: 20040201
  2. DOXORUBICIN HCL [Suspect]
     Indication: DRUG USE FOR UNKNOWN INDICATION
     Dosage: DOSE UNIT:UNKNOWN
     Route: 065
     Dates: start: 20030701, end: 20040201
  3. VINCRISTINE SULFATE [Suspect]
     Indication: DRUG USE FOR UNKNOWN INDICATION
     Route: 065
     Dates: start: 20030701, end: 20040201
  4. RITUXIMAB [Suspect]
     Indication: DRUG USE FOR UNKNOWN INDICATION
     Route: 065
     Dates: start: 20030701, end: 20040201
  5. PREDONINE [Suspect]
     Indication: DRUG USE FOR UNKNOWN INDICATION
     Route: 065
     Dates: start: 20030701, end: 20040201
  6. RADIOTHERAPY [Suspect]
     Indication: DRUG USE FOR UNKNOWN INDICATION
     Dosage: DOSE UNIT:CENTIGRAY
     Dates: start: 20030701, end: 20040201

REACTIONS (1)
  - GASTRIC CANCER [None]
